FAERS Safety Report 7569320-6 (Version None)
Quarter: 2011Q2

REPORT INFORMATION
  Report Type: 
  Country: None (occurrence: None)
  Receive Date: 20110623
  Receipt Date: 20110617
  Transmission Date: 20111010
  Serious: Yes (Other)
  Sender: FDA-Public Use
  Company Number: US-ABBOTT-11P-163-0733782-00

PATIENT
  Sex: Male
  Weight: 71.278 kg

DRUGS (4)
  1. MULTI-VITAMIN [Concomitant]
     Indication: PRODUCT USED FOR UNKNOWN INDICATION
  2. HUMIRA [Suspect]
     Route: 058
     Dates: start: 20110401, end: 20110501
  3. HUMIRA [Suspect]
     Indication: CROHN'S DISEASE
     Route: 058
     Dates: start: 20110201, end: 20110401
  4. HUMIRA [Suspect]
     Route: 058
     Dates: start: 20110501, end: 20110613

REACTIONS (11)
  - FREQUENT BOWEL MOVEMENTS [None]
  - LUPUS-LIKE SYNDROME [None]
  - MYALGIA [None]
  - SWELLING FACE [None]
  - ARTHRALGIA [None]
  - MALAISE [None]
  - FISTULA [None]
  - PAIN IN JAW [None]
  - FATIGUE [None]
  - ANTINUCLEAR ANTIBODY POSITIVE [None]
  - MOBILITY DECREASED [None]
